FAERS Safety Report 5229248-3 (Version None)
Quarter: 2007Q1

REPORT INFORMATION
  Report Type: 
  Country: None (occurrence: None)
  Receive Date: 20061201
  Receipt Date: 20060911
  Transmission Date: 20070707
  Serious: No
  Sender: FDA-Public Use
  Company Number: US200609002431

PATIENT
  Age: 41 Year
  Sex: Female

DRUGS (2)
  1. CYMBALTA [Suspect]
     Indication: ANXIETY
     Dosage: 30 MG
     Dates: start: 20060906, end: 20060908
  2. WELLBUTRIN SR [Concomitant]

REACTIONS (1)
  - DRUG INTOLERANCE [None]
